FAERS Safety Report 6119253-7 (Version None)
Quarter: 2009Q1

REPORT INFORMATION
  Report Type: 
  Country: None (occurrence: None)
  Receive Date: 20090316
  Receipt Date: 20090303
  Transmission Date: 20090719
  Serious: Yes (Hospitalization)
  Sender: FDA-Public Use
  Company Number: US-ELI_LILLY_AND_COMPANY-US200903000729

PATIENT
  Sex: Female

DRUGS (3)
  1. FORTEO [Suspect]
     Indication: OSTEOPOROSIS
     Dates: start: 20080101
  2. AVINZA [Concomitant]
     Indication: ARTHRALGIA
  3. NEURONTIN [Concomitant]

REACTIONS (2)
  - DRUG HYPERSENSITIVITY [None]
  - PNEUMONIA [None]
